FAERS Safety Report 5916155-3 (Version None)
Quarter: 2008Q4

REPORT INFORMATION
  Report Type: 
  Country: None (occurrence: None)
  Receive Date: 20081009
  Receipt Date: 20080930
  Transmission Date: 20090506
  Serious: Yes (Hospitalization, Other)
  Sender: FDA-Public Use
  Company Number: 2008BI018071

PATIENT
  Sex: Male

DRUGS (4)
  1. TYSABRI [Suspect]
     Indication: MULTIPLE SCLEROSIS
     Dosage: IV; 300 MG;QM;IV
     Route: 042
     Dates: start: 20050101, end: 20050101
  2. TYSABRI [Suspect]
     Indication: MULTIPLE SCLEROSIS
     Dosage: IV; 300 MG;QM;IV
     Route: 042
     Dates: start: 20060919
  3. KEPPRA [Concomitant]
  4. . [Concomitant]

REACTIONS (3)
  - CONVULSION [None]
  - INFECTION [None]
  - PNEUMONIA [None]
